FAERS Safety Report 6324826-2 (Version None)
Quarter: 2009Q3

REPORT INFORMATION
  Report Type: 
  Country: None (occurrence: None)
  Receive Date: 20090824
  Receipt Date: 20090623
  Transmission Date: 20100115
  Serious: No
  Sender: FDA-Public Use
  Company Number: US-ABBOTT-09P-163-0581600-00

PATIENT
  Sex: Male
  Weight: 95.34 kg

DRUGS (7)
  1. NIASPAN [Suspect]
     Indication: BLOOD CHOLESTEROL INCREASED
     Dosage: DAILY AT BEDTIME
     Dates: start: 20090601
  2. IMIPRAMINE [Concomitant]
     Indication: DRUG USE FOR UNKNOWN INDICATION
  3. AMITRIPTYLINE [Concomitant]
     Indication: DRUG USE FOR UNKNOWN INDICATION
  4. LISINOPRIL [Concomitant]
     Indication: DRUG USE FOR UNKNOWN INDICATION
  5. TRIAMTERINE/HCTZ [Concomitant]
     Indication: DRUG USE FOR UNKNOWN INDICATION
  6. PRAVASTATIN [Concomitant]
     Indication: DRUG USE FOR UNKNOWN INDICATION
  7. RITALIN [Concomitant]
     Indication: DRUG USE FOR UNKNOWN INDICATION

REACTIONS (1)
  - RASH [None]
